FAERS Safety Report 5024723-9 (Version None)
Quarter: 2006Q2

REPORT INFORMATION
  Report Type: 
  Country: None (occurrence: None)
  Receive Date: 20060607
  Receipt Date: 20060522
  Transmission Date: 20061013
  Serious: Yes (Other)
  Sender: FDA-Public Use
  Company Number: 2006EU001631

PATIENT
  Age: 46 Year
  Sex: Male

DRUGS (4)
  1. PROGRAF [Suspect]
     Indication: HEART AND LUNG TRANSPLANT
     Dosage: MG, D
  2. METHYLPREDNISOLONE [Concomitant]
  3. PREDNISONE [Concomitant]
  4. MYCOPHENOLATE MOFETIL [Concomitant]

REACTIONS (1)
  - KAPOSI'S SARCOMA [None]
